FAERS Safety Report 9159587 (Version 2)
Quarter: 2013Q1

REPORT INFORMATION
  Report Type: Spontaneous
  Country: JP (occurrence: None)
  Receive Date: 20130219
  Receipt Date: 20130228
  Transmission Date: 20140127
  Serious: Yes (Hospitalization)
  Sender: FDA-Public Use
  Company Number: TCI2013A00714

PATIENT
  Age: 69 Year
  Sex: Female

DRUGS (4)
  1. NESINA [Suspect]
     Indication: DIABETES MELLITUS
     Dosage: 6.25MG (6.25 MG, 1 IN 1 D)
     Route: 048
     Dates: start: 20120723, end: 20130116
  2. NESINA [Suspect]
     Dosage: 6.25MG (6.25 MG, 1 IN 1 D)
     Route: 048
     Dates: start: 20120723, end: 20130116
  3. FERROMIA [Concomitant]
  4. MUCOSTA [Concomitant]

REACTIONS (1)
  - Intestinal obstruction [None]
